FAERS Safety Report 12882127 (Version 1)
Quarter: 2016Q4

REPORT INFORMATION
  Report Type: Spontaneous
  Country: US (occurrence: US)
  Receive Date: 20161025
  Receipt Date: 20161025
  Transmission Date: 20170207
  Serious: No
  Sender: FDA-Public Use
  Company Number: US-BAYER-2016-204729

PATIENT
  Age: 40 Year
  Sex: Male

DRUGS (1)
  1. GADAVIST [Suspect]
     Active Substance: GADOBUTROL
     Indication: INFECTION
     Dosage: 10 ML, ONCE
     Route: 042
     Dates: start: 201610, end: 201610

REACTIONS (2)
  - Nausea [None]
  - Product use issue [None]

NARRATIVE: CASE EVENT DATE: 20161017
